FAERS Safety Report 8240667-3 (Version None)
Quarter: 2012Q1

REPORT INFORMATION
  Report Type: 
  Country: None (occurrence: None)
  Receive Date: 20120328
  Receipt Date: 20120321
  Transmission Date: 20120608
  Serious: Yes (Other)
  Sender: FDA-Public Use
  Company Number: FR-PFIZER INC-2012073719

PATIENT
  Age: 50 Year
  Sex: Female
  Weight: 55 kg

DRUGS (1)
  1. ZOLOFT [Suspect]
     Indication: DEPRESSED MOOD
     Dosage: 50 MG, 1X/DAY
     Dates: start: 20100101

REACTIONS (6)
  - INTENTIONAL OVERDOSE [None]
  - PARANOID PERSONALITY DISORDER [None]
  - SUICIDE ATTEMPT [None]
  - ABNORMAL BEHAVIOUR [None]
  - ANGER [None]
  - ALCOHOL ABUSE [None]
